FAERS Safety Report 24702310 (Version 1)
Quarter: 2024Q4

REPORT INFORMATION
  Report Type: Spontaneous
  Country: PT (occurrence: PT)
  Receive Date: 20241205
  Receipt Date: 20241205
  Transmission Date: 20250115
  Serious: Yes (Hospitalization, Other)
  Sender: Vantive US Healthcare
  Company Number: PT-VANTIVE-2024VAN021252

PATIENT
  Sex: Male

DRUGS (15)
  1. CALCIUM CHLORIDE\DEXTROSE\MAGNESIUM CHLORIDE\SODIUM CHLORIDE [Suspect]
     Active Substance: CALCIUM CHLORIDE\DEXTROSE\MAGNESIUM CHLORIDE\SODIUM CHLORIDE
     Dosage: 1500 ML
     Route: 033
     Dates: start: 202401
  2. CALCIUM CHLORIDE\DEXTROSE\MAGNESIUM CHLORIDE\SODIUM CHLORIDE [Suspect]
     Active Substance: CALCIUM CHLORIDE\DEXTROSE\MAGNESIUM CHLORIDE\SODIUM CHLORIDE
     Dosage: 1500 ML
     Route: 033
     Dates: start: 202402
  3. NUTRINEAL PD4 [Suspect]
     Active Substance: AMINO ACIDS\CALCIUM CHLORIDE\MAGNESIUM CHLORIDE\SODIUM CHLORIDE\SODIUM LACTATE
     Dosage: 1500 ML
     Route: 065
     Dates: start: 202402
  4. EXTRANEAL [Suspect]
     Active Substance: CALCIUM CHLORIDE\ICODEXTRIN\MAGNESIUM CHLORIDE\SODIUM CHLORIDE\SODIUM LACTATE
     Dosage: 1500 ML
     Route: 033
     Dates: start: 201908
  5. ESOMEPRAZOLE [Concomitant]
     Active Substance: ESOMEPRAZOLE
     Dosage: 1 PER DAY
     Route: 065
  6. LEVOTHYROXINE SODIUM [Concomitant]
     Active Substance: LEVOTHYROXINE SODIUM
     Dosage: 1 PER DAY
     Route: 065
  7. LASIX [Concomitant]
     Active Substance: FUROSEMIDE
     Dosage: 6 TABLETS PER DAY
     Route: 065
  8. ALDACTONE [Concomitant]
     Active Substance: SPIRONOLACTONE
     Dosage: 1 PER DAY
     Route: 065
  9. METOLAZONE [Concomitant]
     Active Substance: METOLAZONE
     Dosage: 2 TABLETS PER DAY
     Route: 065
  10. DAPAGLIFLOZIN [Concomitant]
     Active Substance: DAPAGLIFLOZIN
     Dosage: 1 TABLET PER DAY
     Route: 065
  11. LINAGLIPTIN [Concomitant]
     Active Substance: LINAGLIPTIN
     Dosage: 1 TABLET PER DAY
     Route: 065
  12. APIXABAN [Concomitant]
     Active Substance: APIXABAN
     Dosage: 2 TABLETS PER DAY
     Route: 065
  13. ATORVASTATIN [Concomitant]
     Active Substance: ATORVASTATIN
     Dosage: 1 TABLET PER DAY
     Route: 065
  14. PARICALCITOL [Concomitant]
     Active Substance: PARICALCITOL
     Dosage: 2 PER WEEK
     Route: 065
  15. FOSFOMYCIN [Concomitant]
     Active Substance: FOSFOMYCIN
     Dosage: 1 PER WEEK
     Route: 065

REACTIONS (4)
  - Gangrene [Unknown]
  - Pyuria [Unknown]
  - Noninfectious peritonitis [Recovered/Resolved]
  - Cystitis [Unknown]
